FAERS Safety Report 5366302-X (Version None)
Quarter: 2007Q2

REPORT INFORMATION
  Report Type: 
  Country: None (occurrence: None)
  Receive Date: 20070619
  Receipt Date: 20070619
  Transmission Date: 20071010
  Serious: Yes (Other)
  Sender: FDA-Public Use
  Company Number: None

PATIENT
  Sex: Male
  Weight: 101.9233 kg

DRUGS (8)
  1. MONOCLONAL ANTIBODY 17-1A 100MG CENTOCOR [Suspect]
     Indication: COLON CANCER
     Dates: start: 19990329, end: 19990722
  2. WARFARIN SODIUM [Concomitant]
  3. CELEXA [Concomitant]
  4. FUROSEMIDE [Concomitant]
  5. POTASSIUM CHLORIDE [Concomitant]
  6. METOPROLOL SUCCINATE [Concomitant]
  7. PROMETHAZINE [Concomitant]
  8. METAMUCIL [Concomitant]

REACTIONS (2)
  - HEPATIC CANCER METASTATIC [None]
  - HEPATIC NEOPLASM MALIGNANT [None]
